FAERS Safety Report 6161787-3 (Version None)
Quarter: 2009Q2

REPORT INFORMATION
  Report Type: 
  Country: None (occurrence: None)
  Receive Date: 20090421
  Receipt Date: 20090409
  Transmission Date: 20091009
  Serious: No
  Sender: FDA-Public Use
  Company Number: AU-ROCHE-626499

PATIENT
  Age: 29 Year
  Sex: Female

DRUGS (2)
  1. ROACCUTANE [Suspect]
     Indication: DRUG USE FOR UNKNOWN INDICATION
     Route: 048
     Dates: start: 20080801, end: 20090301
  2. ROACCUTANE [Suspect]
     Dosage: FREQUENCY: WEEKLY
     Route: 048

REACTIONS (2)
  - NO ADVERSE EVENT [None]
  - PREGNANCY [None]
